FAERS Safety Report 6704264-0 (Version None)
Quarter: 2010Q2

REPORT INFORMATION
  Report Type: 
  Country: None (occurrence: None)
  Receive Date: 20100430
  Receipt Date: 20100421
  Transmission Date: 20101027
  Serious: Yes (Other)
  Sender: FDA-Public Use
  Company Number: JP-SANOFI-AVENTIS-2010SA022751

PATIENT
  Age: 68 Year
  Sex: Male
  Weight: 59 kg

DRUGS (14)
  1. ELPLAT [Suspect]
     Indication: RECTAL CANCER
     Route: 041
     Dates: start: 20091013, end: 20091013
  2. FLUOROURACIL [Concomitant]
     Indication: RECTAL CANCER
     Route: 040
     Dates: start: 20091013, end: 20091013
  3. FLUOROURACIL [Concomitant]
     Route: 041
     Dates: start: 20091013, end: 20091014
  4. ISOVORIN [Concomitant]
     Indication: RECTAL CANCER
     Route: 041
     Dates: start: 20091013, end: 20091013
  5. AVASTIN [Concomitant]
     Indication: RECTAL CANCER
     Route: 041
     Dates: start: 20091013, end: 20091013
  6. DEXAMETHASONE SODIUM PHOSPHATE [Concomitant]
     Indication: PREMEDICATION
     Route: 041
     Dates: start: 20091013, end: 20100330
  7. KYTRIL [Concomitant]
     Indication: PREMEDICATION
     Route: 041
     Dates: start: 20091013, end: 20100330
  8. GASTER D [Concomitant]
     Indication: PALLIATIVE CARE
     Route: 048
     Dates: start: 20091013, end: 20091106
  9. GASMOTIN [Concomitant]
     Indication: PALLIATIVE CARE
     Route: 048
     Dates: start: 20091013, end: 20100420
  10. BIO THREE [Concomitant]
     Indication: PALLIATIVE CARE
     Route: 048
     Dates: start: 20091013, end: 20100420
  11. NAUZELIN [Concomitant]
     Indication: PROPHYLAXIS OF NAUSEA AND VOMITING
     Route: 048
     Dates: start: 20091024, end: 20100420
  12. DEXAMETHASONE [Concomitant]
     Indication: PROPHYLAXIS OF NAUSEA AND VOMITING
     Route: 048
     Dates: start: 20091024, end: 20100420
  13. ZOFRAN [Concomitant]
     Indication: PROPHYLAXIS OF NAUSEA AND VOMITING
     Route: 048
     Dates: start: 20091024, end: 20100420
  14. TAKEPRON [Concomitant]
     Indication: PALLIATIVE CARE
     Route: 048
     Dates: start: 20091106, end: 20100420

REACTIONS (1)
  - GASTROINTESTINAL MOTILITY DISORDER [None]
